FAERS Safety Report 21156155 (Version 1)
Quarter: 2022Q3

REPORT INFORMATION
  Report Type: Spontaneous
  Country: US (occurrence: US)
  Receive Date: 20220801
  Receipt Date: 20220801
  Transmission Date: 20221027
  Serious: No
  Sender: FDA-Public Use
  Company Number: US-MYLANLABS-2022M1081368

PATIENT
  Age: 80 Year
  Sex: Female
  Weight: 55.79 kg

DRUGS (1)
  1. ESTRADIOL [Suspect]
     Active Substance: ESTRADIOL
     Indication: Groin pain
     Dosage: 0.01 PERCENT QD (MORE THAN HALF OF THE MEASUREMENT PORTION ON THE APPLICATOR EVERY OTHER 3 DAYS)
     Route: 067
     Dates: start: 20220718

REACTIONS (3)
  - Musculoskeletal discomfort [Not Recovered/Not Resolved]
  - Back pain [Not Recovered/Not Resolved]
  - Abdominal pain [Not Recovered/Not Resolved]

NARRATIVE: CASE EVENT DATE: 20220718
